FAERS Safety Report 5795193-8 (Version None)
Quarter: 2008Q2

REPORT INFORMATION
  Report Type: 
  Country: None (occurrence: None)
  Receive Date: 20080626
  Receipt Date: 20080612
  Transmission Date: 20081010
  Serious: Yes (Life-Threatening)
  Sender: FDA-Public Use
  Company Number: 2008US001500

PATIENT
  Age: 70 Year
  Sex: Male
  Weight: 77 kg

DRUGS (9)
  1. AMBISOME [Suspect]
     Indication: FEBRILE NEUTROPENIA
     Dosage: 180 MG, BID; PARENTERAL
     Route: 051
     Dates: start: 20080411, end: 20080411
  2. ITRACONAZOLE [Concomitant]
  3. MEROPEN (MEROPENEM) [Concomitant]
  4. AMIKACIN SULFATE [Concomitant]
  5. FULCALIQ (VITAMINS NOS, AMINO ACIDS NOS, ELECTROLYTES NOS, CARBOHYDRAT [Concomitant]
  6. GASTER [Concomitant]
  7. VENOGLOBULIN-I [Concomitant]
  8. RED BLOOD CELLS [Concomitant]
  9. PLATELETS (PLATELETS) [Concomitant]

REACTIONS (2)
  - LOSS OF CONSCIOUSNESS [None]
  - SHOCK [None]
